FAERS Safety Report 9714097 (Version 1)
Quarter: 2013Q4

REPORT INFORMATION
  Report Type: Spontaneous
  Country: US (occurrence: US)
  Receive Date: 20131126
  Receipt Date: 20131126
  Transmission Date: 20140711
  Serious: No
  Sender: FDA-Public Use
  Company Number: US-GILEAD-2008-0018870

PATIENT
  Sex: Female
  Weight: 81.65 kg

DRUGS (10)
  1. LETAIRIS [Suspect]
     Indication: PULMONARY ARTERIAL HYPERTENSION
     Route: 048
     Dates: start: 20080820
  2. ATENOLOL [Concomitant]
  3. HYDROCHLOROTHIAZIDE [Concomitant]
  4. ASPIRIN [Concomitant]
  5. ZOLOFT [Concomitant]
  6. BUSPAR [Concomitant]
  7. L-ARGININE [Concomitant]
  8. COENZYME [Concomitant]
  9. MULTIVITAMIN [Concomitant]
  10. FISH OIL [Concomitant]

REACTIONS (2)
  - Blood pressure decreased [None]
  - Unevaluable event [None]
